FAERS Safety Report 14145835 (Version 1)
Quarter: 2017Q4

REPORT INFORMATION
  Report Type: Report from Study
  Country: IT (occurrence: IT)
  Receive Date: 20171031
  Receipt Date: 20171031
  Transmission Date: 20180321
  Serious: Yes (Death, Other)
  Sender: FDA-Public Use
  Company Number: IT-CELGENEUS-ITA-2014112206

PATIENT

DRUGS (2)
  1. BENDAMUSTINE [Suspect]
     Active Substance: BENDAMUSTINE
     Indication: HODGKIN^S DISEASE
     Dosage: 60 MICROGRAM/SQ. METER
     Route: 065
     Dates: start: 20150122
  2. REVLIMID [Suspect]
     Active Substance: LENALIDOMIDE
     Indication: HODGKIN^S DISEASE
     Route: 048
     Dates: start: 20150122

REACTIONS (23)
  - Insomnia [Unknown]
  - Blood creatinine increased [Unknown]
  - Constipation [Unknown]
  - Blood uric acid increased [Unknown]
  - Thrombocytopenia [Unknown]
  - Arrhythmia supraventricular [Unknown]
  - Diarrhoea [Unknown]
  - Gamma-glutamyltransferase increased [Unknown]
  - Hypophosphataemia [Unknown]
  - Blood alkaline phosphatase increased [Unknown]
  - Phlebitis [Unknown]
  - Pneumonitis [Unknown]
  - Nausea [Unknown]
  - Rash [Unknown]
  - Anaemia [Unknown]
  - Neutropenia [Unknown]
  - Lymphocyte count decreased [Unknown]
  - Respiratory tract infection [Unknown]
  - Transaminases increased [Unknown]
  - Infection [Unknown]
  - Hodgkin^s disease [Fatal]
  - Febrile neutropenia [Unknown]
  - Vomiting [Unknown]
